FAERS Safety Report 11201111 (Version 1)
Quarter: 2015Q2

REPORT INFORMATION
  Report Type: Spontaneous
  Country: KR (occurrence: KR)
  Receive Date: 20150619
  Receipt Date: 20150619
  Transmission Date: 20150821
  Serious: Yes (Hospitalization)
  Sender: FDA-Public Use
  Company Number: KR-AMGEN-KORCT2015059232

PATIENT
  Age: 54 Year
  Sex: Female

DRUGS (27)
  1. G-LASTA [Suspect]
     Active Substance: PEGFILGRASTIM
     Dosage: 6 MG, 1X/3WEEKS
     Route: 058
     Dates: start: 20150531
  2. DEXAMETHASONE. [Concomitant]
     Active Substance: DEXAMETHASONE
     Dosage: 1.5 MG, UNK
     Route: 048
     Dates: start: 20150508, end: 20150508
  3. G-LASTA [Suspect]
     Active Substance: PEGFILGRASTIM
     Indication: FEBRILE NEUTROPENIA
     Dosage: 6 MG, 1X/3WEEKS
     Route: 058
     Dates: start: 20150510
  4. DOXORUBICIN [Concomitant]
     Active Substance: DOXORUBICIN
     Indication: BREAST CANCER
     Dosage: 72 MG, UNK
     Route: 042
     Dates: start: 20150509, end: 20150509
  5. DEXAMETHASONE. [Concomitant]
     Active Substance: DEXAMETHASONE
     Dosage: 10 MG, UNK
     Route: 042
     Dates: start: 20150509, end: 20150509
  6. PALONOSETRON [Concomitant]
     Active Substance: PALONOSETRON
     Dosage: 0.25 MG, UNK
     Route: 042
     Dates: start: 20150509, end: 20150509
  7. RANITIDINE [Concomitant]
     Active Substance: RANITIDINE\RANITIDINE HYDROCHLORIDE
     Dosage: 300 MG, UNK
     Route: 048
     Dates: start: 20150508, end: 20150510
  8. FILGRASTIM [Concomitant]
     Active Substance: FILGRASTIM
     Dosage: 150 MUG, UNK
     Route: 058
     Dates: start: 20150515, end: 20150516
  9. LEGALON [Concomitant]
     Active Substance: MILK THISTLE
     Dosage: 420 MG, UNK
     Route: 048
     Dates: start: 20150517, end: 20150524
  10. DEXAMETHASONE. [Concomitant]
     Active Substance: DEXAMETHASONE
     Dosage: 3 MG, UNK
     Route: 048
     Dates: start: 20150510, end: 20150510
  11. CEFOBACTAM [Concomitant]
     Dosage: 2 G, UNK
     Route: 042
     Dates: start: 20150515, end: 20150516
  12. DOCETAXEL. [Concomitant]
     Active Substance: DOCETAXEL
     Dosage: 108 MG, UNK
     Route: 042
     Dates: start: 20150530, end: 20150530
  13. CYCLOPHOSPHAMIDE. [Concomitant]
     Active Substance: CYCLOPHOSPHAMIDE
     Dosage: 725 MG, UNK
     Route: 042
     Dates: start: 20150530, end: 20150530
  14. APREPITANT. [Concomitant]
     Active Substance: APREPITANT
     Dosage: 80 MG, UNK
     Route: 048
     Dates: start: 20150510, end: 20150511
  15. TRESTAN                            /00056201/ [Concomitant]
     Dosage: 2C, UNK
     Route: 048
     Dates: start: 20150515, end: 20150516
  16. TOBRAMYCIN. [Concomitant]
     Active Substance: TOBRAMYCIN
     Dosage: 200 MG, UNK
     Route: 042
     Dates: start: 20150515, end: 20150516
  17. PENNEL                             /01570505/ [Concomitant]
     Dosage: 3C, UNK
     Route: 048
     Dates: start: 20150517, end: 20150524
  18. DOCETAXEL. [Concomitant]
     Active Substance: DOCETAXEL
     Indication: BREAST CANCER
     Dosage: 108 MG, UNK
     Route: 042
     Dates: start: 20150509, end: 20150509
  19. DOXORUBICIN [Concomitant]
     Active Substance: DOXORUBICIN
     Dosage: 72 MG, UNK
     Route: 042
     Dates: start: 20150530, end: 20150530
  20. CYCLOPHOSPHAMIDE. [Concomitant]
     Active Substance: CYCLOPHOSPHAMIDE
     Indication: BREAST CANCER
     Dosage: 725 MG, UNK
     Route: 042
     Dates: start: 20150509, end: 20150509
  21. DEXRAZOXANE. [Concomitant]
     Active Substance: DEXRAZOXANE
     Dosage: 720 MG, UNK
     Route: 042
     Dates: start: 20150509, end: 20150509
  22. MEGESTROL ACETATE. [Concomitant]
     Active Substance: MEGESTROL ACETATE
     Dosage: 800 MG, UNK
     Route: 048
     Dates: start: 20150515, end: 20150516
  23. VITAMEDIN                          /00176001/ [Concomitant]
     Dosage: 50 MG, UNK
     Route: 048
     Dates: start: 20150515, end: 20150516
  24. ORNITHINE ASPARTATE [Concomitant]
     Active Substance: ORNITHINE ASPARTATE
     Dosage: 10 MG, UNK
     Route: 042
     Dates: start: 20150516, end: 20150516
  25. DIMENHYDRINATE. [Concomitant]
     Active Substance: DIMENHYDRINATE
     Dosage: 150 MG, UNK
     Route: 048
     Dates: start: 20150508, end: 20150510
  26. METOCLOPRAMIDE HCL [Concomitant]
     Active Substance: METOCLOPRAMIDE HYDROCHLORIDE
     Dosage: 30 MG, UNK
     Route: 048
     Dates: start: 20150508, end: 20150510
  27. APREPITANT. [Concomitant]
     Active Substance: APREPITANT
     Dosage: 125 MG, UNK
     Route: 048
     Dates: start: 20150509, end: 20150509

REACTIONS (1)
  - Neutropenia [Recovered/Resolved]

NARRATIVE: CASE EVENT DATE: 20150605
